FAERS Safety Report 6730097-5 (Version None)
Quarter: 2010Q2

REPORT INFORMATION
  Report Type: 
  Country: None (occurrence: None)
  Receive Date: 20100513
  Receipt Date: 20100427
  Transmission Date: 20101027
  Serious: Yes (Other)
  Sender: FDA-Public Use
  Company Number: 2010S1002619

PATIENT
  Age: 50 Year
  Sex: Male

DRUGS (10)
  1. PHOSPHOSODA FLAVOR NOT SPECIFIED [Suspect]
     Indication: COLONOSCOPY
     Dosage: PO
     Route: 048
     Dates: start: 20070416, end: 20070416
  2. COLCHICINE [Concomitant]
  3. KLOR-CON [Concomitant]
  4. WARFARIN SODIUM [Concomitant]
  5. SIMVASTATIN [Concomitant]
  6. ALLOPURINOL [Concomitant]
  7. ATENOLOL [Concomitant]
  8. FUROSEMIDE [Concomitant]
  9. LEVOTHYNXIDE [Concomitant]
  10. BENAZEPRIL HYDROCHLORIDE [Concomitant]

REACTIONS (1)
  - RENAL DISORDER [None]
